FAERS Safety Report 7733581-0 (Version None)
Quarter: 2011Q3

REPORT INFORMATION
  Report Type: 
  Country: None (occurrence: None)
  Receive Date: 20110902
  Receipt Date: 20110902
  Transmission Date: 20111222
  Serious: No
  Sender: FDA-Public Use
  Company Number: None

PATIENT
  Sex: Female
  Weight: 77.1115 kg

DRUGS (1)
  1. ZYVOX [Suspect]
     Indication: STAPHYLOCOCCAL INFECTION
     Dosage: ONE PILL TWICE A DAY EVERY 12 HOURS
     Dates: start: 20110729, end: 20110808

REACTIONS (4)
  - PRURITUS [None]
  - DERMATITIS [None]
  - SWELLING [None]
  - PAIN [None]
